FAERS Safety Report 4860579-2 (Version None)
Quarter: 2005Q4

REPORT INFORMATION
  Report Type: 
  Country: None (occurrence: None)
  Receive Date: 20051219
  Receipt Date: 20050725
  Transmission Date: 20060501
  Serious: Yes (Hospitalization, Other)
  Sender: FDA-Public Use
  Company Number: US-MERCK-0507USA03902

PATIENT
  Age: 66 Year
  Sex: Female
  Weight: 86 kg

DRUGS (3)
  1. VIOXX [Suspect]
     Indication: ARTHRITIS
     Route: 048
     Dates: start: 20000801, end: 20040930
  2. VIOXX [Suspect]
     Route: 048
  3. TYLENOL [Concomitant]
     Route: 065

REACTIONS (11)
  - AMNESIA [None]
  - ANXIETY [None]
  - BACK DISORDER [None]
  - BURSITIS [None]
  - CEREBROVASCULAR ACCIDENT [None]
  - ESSENTIAL TREMOR [None]
  - FEELING ABNORMAL [None]
  - INSOMNIA [None]
  - LIBIDO DECREASED [None]
  - NAUSEA [None]
  - TREMOR [None]
